FAERS Safety Report 8590918-0 (Version None)
Quarter: 2012Q3

REPORT INFORMATION
  Report Type: 
  Country: None (occurrence: None)
  Receive Date: 20120813
  Receipt Date: 20120803
  Transmission Date: 20120928
  Serious: Yes (Death, Hospitalization)
  Sender: FDA-Public Use
  Company Number: US-BAXTER-2012BAX012855

PATIENT
  Sex: Female
  Weight: 98.064 kg

DRUGS (11)
  1. GAMMAGARD LIQUID [Suspect]
     Route: 065
  2. RESTORIL [Concomitant]
     Indication: SLEEP DISORDER
     Route: 048
  3. AMBIEN [Concomitant]
     Indication: SLEEP DISORDER
     Route: 048
  4. PHENERGAN HCL [Concomitant]
     Route: 042
  5. COUMADIN [Concomitant]
     Route: 048
  6. IMITREX [Concomitant]
     Indication: HEADACHE
     Route: 048
  7. OGEN [Concomitant]
     Route: 048
     Dates: start: 20111101
  8. INDERAL LA [Concomitant]
     Route: 048
  9. EPINEPHRINE [Concomitant]
     Route: 042
  10. GAMMAGARD LIQUID [Suspect]
     Route: 042
     Dates: start: 20120719, end: 20120719
  11. DELTASONE [Concomitant]
     Route: 048
     Dates: start: 20110101

REACTIONS (8)
  - HAEMORRHAGE [None]
  - NAUSEA [None]
  - ANAPHYLACTIC REACTION [None]
  - CHEST DISCOMFORT [None]
  - CHILLS [None]
  - DEATH [None]
  - DYSPNOEA [None]
  - CYANOSIS [None]
